FAERS Safety Report 13386037 (Version 6)
Quarter: 2017Q2

REPORT INFORMATION
  Report Type: Report from Study
  Country: CO (occurrence: CO)
  Receive Date: 20170330
  Receipt Date: 20170516
  Transmission Date: 20170830
  Serious: Yes (Death, Life-Threatening, Hospitalization, Other)
  Sender: FDA-Public Use
  Company Number: CO-AMGEN-COLSL2017047662

PATIENT
  Age: 33 Year
  Sex: Female

DRUGS (1)
  1. NPLATE [Suspect]
     Active Substance: ROMIPLOSTIM
     Indication: IMMUNE THROMBOCYTOPENIC PURPURA
     Dosage: 250 MUG, QWK
     Route: 058
     Dates: start: 20140918, end: 20170504

REACTIONS (10)
  - Respiratory failure [Fatal]
  - Medical induction of coma [Not Recovered/Not Resolved]
  - Haematoma [Not Recovered/Not Resolved]
  - Intentional product misuse [Unknown]
  - Asthenia [Recovered/Resolved]
  - Thrombocytosis [Not Recovered/Not Resolved]
  - Gingival bleeding [Not Recovered/Not Resolved]
  - Vulvovaginal warts [Unknown]
  - Thrombocytopenia [Not Recovered/Not Resolved]
  - Petechiae [Recovering/Resolving]

NARRATIVE: CASE EVENT DATE: 20170106
